FAERS Safety Report 9153829 (Version 2)
Quarter: 2013Q1

REPORT INFORMATION
  Report Type: Spontaneous
  Country: GB (occurrence: None)
  Receive Date: 20130205
  Receipt Date: 20130212
  Transmission Date: 20140127
  Serious: Yes (Other)
  Sender: FDA-Public Use
  Company Number: AUR-APL-2013-01085

PATIENT
  Sex: Male

DRUGS (4)
  1. MIRTAZAPINE (MIRTAZAPINE) [Suspect]
     Indication: DEPRESSION
     Route: 048
     Dates: start: 20121101, end: 20121114
  2. SERTRALINE (SERTRALINE) (SERTRALINE) [Suspect]
     Indication: DEPRESSION
     Dosage: 200 MG (200 MG, 1 IN 1 D), ORAL
     Route: 048
     Dates: start: 20120926
  3. DOMPERIDONE (DOMPERIDONE) [Concomitant]
  4. RAMIPRIL (RAMIPRIL) [Concomitant]

REACTIONS (2)
  - Hypertension [None]
  - Serotonin syndrome [None]
